FAERS Safety Report 23310382 (Version 2)
Quarter: 2023Q4

REPORT INFORMATION
  Report Type: Report from Study
  Country: US (occurrence: US)
  Receive Date: 20231218
  Receipt Date: 20231218
  Transmission Date: 20240109
  Serious: No
  Sender: FDA-Public Use
  Company Number: US-HLS-202202124

PATIENT
  Age: 63 Year
  Sex: Male

DRUGS (1)
  1. CLOZARIL [Suspect]
     Active Substance: CLOZAPINE
     Indication: Product used for unknown indication
     Dosage: 100 MG 2 PILLS AT NOON 4 AT BEDTIME
     Route: 065

REACTIONS (4)
  - Product use issue [Unknown]
  - Product dispensing issue [Unknown]
  - Paraesthesia oral [Unknown]
  - Paraesthesia [Unknown]
